FAERS Safety Report 8064768-8 (Version None)
Quarter: 2012Q1

REPORT INFORMATION
  Report Type: 
  Country: None (occurrence: None)
  Receive Date: 20120124
  Receipt Date: 20120116
  Transmission Date: 20120608
  Serious: Yes (Other)
  Sender: FDA-Public Use
  Company Number: FR-BRISTOL-MYERS SQUIBB COMPANY-16354276

PATIENT
  Age: 72 Year
  Sex: Female

DRUGS (9)
  1. NEURONTIN [Concomitant]
     Indication: NEUROPATHY PERIPHERAL
     Route: 048
  2. TRANSIPEG [Concomitant]
     Indication: CONSTIPATION
     Dosage: 1 DF : 2.95 UNITS NOS,TRANSIPEG 2.95 (MACROGOL 3350)
     Route: 048
  3. ABACAVIR SULFATE AND LAMIVUDINE [Concomitant]
     Dosage: 1DF: 600MG/300MG
     Dates: start: 20080327
  4. REYATAZ [Suspect]
     Indication: HIV INFECTION
     Dates: start: 20080327, end: 20110707
  5. ACETAMINOPHEN AND TRAMADOL HCL [Concomitant]
     Indication: ANALGESIC THERAPY
     Dosage: 1DF: 37.5MG/325MG
     Route: 048
  6. CRESTOR [Concomitant]
     Indication: HYPERCHOLESTEROLAEMIA
     Route: 048
  7. NORVIR [Concomitant]
     Route: 048
     Dates: start: 20051115, end: 20110707
  8. TENORMIN [Concomitant]
     Indication: ARRHYTHMIA
     Dosage: 1DF: 0.5/D TENORMINE 50 MG
     Route: 048
  9. LEVOCARNIL [Concomitant]
     Dosage: 100 MG/ML
     Route: 048

REACTIONS (2)
  - RENAL FAILURE [None]
  - NEPHROLITHIASIS [None]
